FAERS Safety Report 5781070-5 (Version None)
Quarter: 2008Q2

REPORT INFORMATION
  Report Type: 
  Country: None (occurrence: None)
  Receive Date: 20080618
  Receipt Date: 20080603
  Transmission Date: 20081010
  Serious: Yes (Disabling)
  Sender: FDA-Public Use
  Company Number: DSA_22893_2003

PATIENT
  Sex: Female

DRUGS (2)
  1. VASOTEC [Suspect]
     Indication: HYPERTENSION
     Dosage: (10 MG QD ORAL)
     Route: 048
     Dates: start: 19910101, end: 19950101
  2. PROCARDIA [Concomitant]

REACTIONS (28)
  - AMNESIA [None]
  - ANXIETY [None]
  - BLOOD PRESSURE INADEQUATELY CONTROLLED [None]
  - CHEST PAIN [None]
  - COUGH [None]
  - DEPRESSION [None]
  - DISORIENTATION [None]
  - DISTURBANCE IN SOCIAL BEHAVIOUR [None]
  - DIZZINESS [None]
  - DRUG INEFFECTIVE [None]
  - DYSPHAGIA [None]
  - EYE SWELLING [None]
  - FLUSHING [None]
  - HEADACHE [None]
  - HYPOTENSION [None]
  - IMPAIRED WORK ABILITY [None]
  - LIBIDO INCREASED [None]
  - NASOPHARYNGITIS [None]
  - NERVOUSNESS [None]
  - NIGHT SWEATS [None]
  - OEDEMA PERIPHERAL [None]
  - PHARMACEUTICAL PRODUCT COMPLAINT [None]
  - POSTNASAL DRIP [None]
  - PYREXIA [None]
  - RHINITIS ALLERGIC [None]
  - SELF ESTEEM DECREASED [None]
  - SWOLLEN TONGUE [None]
  - VISION BLURRED [None]
